FAERS Safety Report 9013455 (Version 2)
Quarter: 2013Q1

REPORT INFORMATION
  Report Type: Spontaneous
  Country: US (occurrence: US)
  Receive Date: 20130114
  Receipt Date: 20130306
  Transmission Date: 20140127
  Serious: No
  Sender: FDA-Public Use
  Company Number: US-009507513-1301USA004647

PATIENT
  Sex: Male

DRUGS (3)
  1. PEGINTRON [Suspect]
     Indication: HEPATITIS C
     Dosage: UNK
     Route: 058
     Dates: start: 20130108
  2. RIBAVIRIN [Suspect]
     Indication: HEPATITIS C
     Dosage: UNK
     Route: 048
     Dates: start: 20130108
  3. VICTRELIS [Suspect]
     Indication: HEPATITIS C
     Dosage: UNK
     Route: 048
     Dates: start: 20130209

REACTIONS (16)
  - Pyrexia [Unknown]
  - Dyspnoea [Unknown]
  - Nausea [Unknown]
  - Rash [Unknown]
  - Pruritus [Unknown]
  - Headache [Unknown]
  - Dizziness [Unknown]
  - Asthenia [Unknown]
  - Fatigue [Unknown]
  - Chills [Unknown]
  - Alopecia [Unknown]
  - Dry mouth [Unknown]
  - Confusional state [Unknown]
  - Rash [Unknown]
  - Pruritus [Unknown]
  - Memory impairment [Unknown]
